FAERS Safety Report 14163893 (Version 2)
Quarter: 2017Q4

REPORT INFORMATION
  Report Type: Spontaneous
  Country: DE (occurrence: DE)
  Receive Date: 20171107
  Receipt Date: 20171110
  Transmission Date: 20180321
  Serious: Yes (Death, Hospitalization, Other)
  Sender: FDA-Public Use
  Company Number: DE-BRISTOL-MYERS SQUIBB COMPANY-BMS-2017-099800

PATIENT
  Age: 69 Year

DRUGS (1)
  1. NIVOLUMAB [Suspect]
     Active Substance: NIVOLUMAB
     Indication: NON-SMALL CELL LUNG CANCER
     Dosage: UNAV.
     Route: 065
     Dates: start: 20151023

REACTIONS (11)
  - Colitis [Unknown]
  - Dyspnoea [Unknown]
  - Acute kidney injury [Unknown]
  - Diarrhoea [Unknown]
  - Gastrointestinal wall thickening [Recovered/Resolved]
  - Death [Fatal]
  - Vomiting [Unknown]
  - Fatigue [Unknown]
  - Cachexia [Unknown]
  - Nausea [Unknown]
  - Decreased appetite [Unknown]

NARRATIVE: CASE EVENT DATE: 2016
